FAERS Safety Report 6656098-3 (Version None)
Quarter: 2010Q1

REPORT INFORMATION
  Report Type: 
  Country: None (occurrence: None)
  Receive Date: 20100329
  Receipt Date: 20100323
  Transmission Date: 20100710
  Serious: No
  Sender: FDA-Public Use
  Company Number: B0637443A

PATIENT
  Sex: Male

DRUGS (4)
  1. RELENZA [Suspect]
     Indication: INFLUENZA
     Dosage: 40MG PER DAY
     Route: 055
     Dates: start: 20090918, end: 20090918
  2. MUCODYNE [Concomitant]
     Indication: PRODUCTIVE COUGH
     Dosage: 2.7G PER DAY
     Route: 048
     Dates: start: 20090918, end: 20090922
  3. ASVERIN [Concomitant]
     Indication: COUGH
     Dosage: .48G PER DAY
     Route: 048
     Dates: start: 20090918, end: 20090922
  4. POLARAMINE [Concomitant]
     Dosage: .39G PER DAY
     Route: 048
     Dates: start: 20090918, end: 20090922

REACTIONS (9)
  - ABNORMAL BEHAVIOUR [None]
  - AGGRESSION [None]
  - DECREASED APPETITE [None]
  - HEADACHE [None]
  - HYPERTHERMIA [None]
  - ILL-DEFINED DISORDER [None]
  - NASAL CONGESTION [None]
  - PYREXIA [None]
  - RHINORRHOEA [None]
